FAERS Safety Report 4549134-1 (Version None)
Quarter: 2005Q1

REPORT INFORMATION
  Report Type: 
  Country: None (occurrence: None)
  Receive Date: 20041227
  Receipt Date: 20040920
  Transmission Date: 20050727
  Serious: No
  Sender: FDA-Public Use
  Company Number: 04P-163-0271590-00

PATIENT
  Age: 70 Year
  Sex: Female
  Weight: 45.3597 kg

DRUGS (8)
  1. HUMIRA [Suspect]
     Indication: RHEUMATOID ARTHRITIS
     Dosage: 40 MG, 1 IN 2 WK, SUBCUTANEOUS
     Route: 058
     Dates: start: 20040820
  2. PENICILLIN [Suspect]
     Indication: TOOTH EXTRACTION
     Dosage: 500 MG, 2 IN 1 D, PER ORAL
     Route: 048
     Dates: start: 20040819
  3. PREDNISONE [Concomitant]
  4. SALICYLATES [Concomitant]
  5. ACETAMINOPHEN [Concomitant]
  6. ASCORBIC ACID [Concomitant]
  7. ALENDRONATE SODIUM [Concomitant]
  8. SYSTANE [Concomitant]

REACTIONS (7)
  - DIZZINESS [None]
  - NAUSEA [None]
  - NEGATIVE THOUGHTS [None]
  - PRURITUS [None]
  - RASH [None]
  - TREMOR [None]
  - VISUAL ACUITY REDUCED [None]
